FAERS Safety Report 15638922 (Version 1)
Quarter: 2018Q4

REPORT INFORMATION
  Report Type: Spontaneous
  Country: US (occurrence: US)
  Receive Date: 20181120
  Receipt Date: 20181120
  Transmission Date: 20190205
  Serious: No
  Sender: FDA-Public Use
  Company Number: US-PERRIGO-18US007776

PATIENT
  Sex: Female
  Weight: 46.71 kg

DRUGS (3)
  1. POLYETHYLENE GLYCOL 3350. [Suspect]
     Active Substance: POLYETHYLENE GLYCOL 3350
     Dosage: 51 MG, QD
     Route: 048
     Dates: start: 2016
  2. DULCOLAX (BISACODYL) [Suspect]
     Active Substance: BISACODYL
     Indication: CONSTIPATION
     Dosage: UNKNOWN, BID
     Route: 048
     Dates: start: 2011, end: 201801
  3. POLYETHYLENE GLYCOL 3350. [Suspect]
     Active Substance: POLYETHYLENE GLYCOL 3350
     Indication: CONSTIPATION
     Dosage: UNKNOWN, UNKNOWN
     Route: 048
     Dates: start: 2010, end: 2016

REACTIONS (3)
  - Abdominal pain upper [Unknown]
  - Incorrect product administration duration [Unknown]
  - Overdose [Unknown]

NARRATIVE: CASE EVENT DATE: 2010
